FAERS Safety Report 23090256 (Version 1)
Quarter: 2023Q4

REPORT INFORMATION
  Report Type: Spontaneous
  Country: US (occurrence: US)
  Receive Date: 20231020
  Receipt Date: 20231020
  Transmission Date: 20240110
  Serious: Yes (Hospitalization)
  Sender: FDA-Public Use
  Company Number: US-CMP PHARMA-2023CMP00051

PATIENT
  Age: 75 Year
  Sex: Male

DRUGS (1)
  1. HYDROCORTISONE [Suspect]
     Active Substance: HYDROCORTISONE
     Indication: Spinal stenosis
     Dosage: UNK, TWICE
     Route: 008

REACTIONS (2)
  - Endocarditis [Recovered/Resolved]
  - Cardiogenic shock [Unknown]
